FAERS Safety Report 25344490 (Version 2)
Quarter: 2025Q2

REPORT INFORMATION
  Report Type: Spontaneous
  Country: KR (occurrence: KR)
  Receive Date: 20250521
  Receipt Date: 20250530
  Transmission Date: 20250716
  Serious: Yes (Hospitalization, Other)
  Sender: CELLTRION
  Company Number: KR-CELLTRION INC.-2025KR015114

PATIENT

DRUGS (17)
  1. TRUXIMA [Suspect]
     Active Substance: RITUXIMAB-ABBS
     Indication: Mantle cell lymphoma
     Route: 042
     Dates: start: 20250107, end: 20250501
  2. BENDAMUSTINE HYDROCHLORIDE MONOHYDRATE [Suspect]
     Active Substance: BENDAMUSTINE HYDROCHLORIDE MONOHYDRATE
     Indication: Product used for unknown indication
     Route: 042
     Dates: start: 20250107, end: 20250501
  3. SULFAMETHOXAZOLE\TRIMETHOPRIM [Concomitant]
     Active Substance: SULFAMETHOXAZOLE\TRIMETHOPRIM
     Route: 048
     Dates: start: 20250430
  4. WITH [Concomitant]
     Route: 048
     Dates: start: 20250514
  5. LANSOPRAZOLE [Concomitant]
     Active Substance: LANSOPRAZOLE
     Route: 048
     Dates: start: 20250430
  6. MAXIPIME [Concomitant]
     Active Substance: CEFEPIME HYDROCHLORIDE
     Route: 042
     Dates: start: 20250514, end: 20250519
  7. FREAMINE [ALANINE;ARGININE;CYSTEINE HYDROCHLORIDE;GLYCINE;HISTIDINE;IS [Concomitant]
     Route: 042
     Dates: start: 20250514, end: 20250515
  8. FREAMINE [ALANINE;ARGININE;CYSTEINE HYDROCHLORIDE;GLYCINE;HISTIDINE;IS [Concomitant]
     Route: 042
     Dates: start: 20250515, end: 20250517
  9. KABI PARACETAMOL [Concomitant]
     Route: 042
     Dates: start: 20250515, end: 20250519
  10. ACETPHEN PREMIX [Concomitant]
     Route: 042
     Dates: start: 20250515, end: 20250517
  11. FOTAGEL [Concomitant]
     Route: 048
     Dates: start: 20250517, end: 20250518
  12. POSPENEM [Concomitant]
     Route: 042
     Dates: start: 20250519, end: 20250523
  13. PLASMA SOLUTION A [Concomitant]
     Route: 042
     Dates: start: 20250520, end: 20250521
  14. LENOGRASTIM [Concomitant]
     Active Substance: LENOGRASTIM
     Route: 042
     Dates: start: 20250521, end: 20250521
  15. LENOGRASTIM [Concomitant]
     Active Substance: LENOGRASTIM
     Route: 042
     Dates: start: 20250525, end: 20250525
  16. LASIX [Concomitant]
     Active Substance: FUROSEMIDE
     Route: 042
     Dates: start: 20250523, end: 20250523
  17. BANAN [Concomitant]
     Active Substance: CEFPODOXIME PROXETIL
     Route: 048
     Dates: start: 20250524

REACTIONS (5)
  - Fatigue [Recovered/Resolved]
  - Pyrexia [Recovered/Resolved]
  - Anaemia [Recovered/Resolved]
  - Neutropenia [Recovered/Resolved]
  - Intentional product use issue [Unknown]

NARRATIVE: CASE EVENT DATE: 20250509
